FAERS Safety Report 5396861-2 (Version None)
Quarter: 2007Q3

REPORT INFORMATION
  Report Type: 
  Country: None (occurrence: None)
  Receive Date: 20070725
  Receipt Date: 20070719
  Transmission Date: 20080115
  Serious: Yes (Life-Threatening, Other)
  Sender: FDA-Public Use
  Company Number: CH-ABBOTT-07P-151-0367894-00

PATIENT
  Age: 19 Year
  Sex: Female
  Weight: 62 kg

DRUGS (3)
  1. KLACID ONE [Suspect]
     Indication: ACUTE SINUSITIS
     Route: 048
     Dates: start: 20070219, end: 20070221
  2. LEVOCETIRIZINE DIHYDROCHLORIDE [Suspect]
     Indication: ACUTE SINUSITIS
     Route: 048
     Dates: start: 20070219, end: 20070221
  3. YASMIN [Concomitant]
     Indication: ORAL CONTRACEPTION
     Route: 048
     Dates: end: 20070402

REACTIONS (8)
  - ALVEOLITIS ALLERGIC [None]
  - CHOLESTASIS [None]
  - FATIGUE [None]
  - JAUNDICE [None]
  - MIXED HEPATOCELLULAR-CHOLESTATIC INJURY [None]
  - PYREXIA [None]
  - RESTRICTIVE PULMONARY DISEASE [None]
  - TRANSAMINASES INCREASED [None]
